FAERS Safety Report 22680930 (Version 2)
Quarter: 2023Q4

REPORT INFORMATION
  Report Type: Other
  Country: US (occurrence: None)
  Receive Date: 20230707
  Receipt Date: 20231002
  Transmission Date: 20240110
  Serious: Yes (Hospitalization, Other)
  Sender: FDA-Public Use
  Company Number: US-ROCHE-3380099

PATIENT
  Sex: Male

DRUGS (1)
  1. AVASTIN [Suspect]
     Active Substance: BEVACIZUMAB
     Indication: Diabetic retinal oedema
     Route: 065

REACTIONS (7)
  - Cardiac failure congestive [Unknown]
  - Diarrhoea [Unknown]
  - Injection site pain [Unknown]
  - Dyspnoea [Unknown]
  - Cough [Unknown]
  - Lacrimation increased [Unknown]
  - Off label use [Unknown]
